FAERS Safety Report 9402618 (Version 4)
Quarter: 2013Q4

REPORT INFORMATION
  Report Type: Spontaneous
  Country: IT (occurrence: IT)
  Receive Date: 20130716
  Receipt Date: 20131002
  Transmission Date: 20140711
  Serious: Yes (Hospitalization)
  Sender: FDA-Public Use
  Company Number: PHHY2013IT073508

PATIENT
  Age: 61 Year
  Sex: Male

DRUGS (8)
  1. SOMATROPIN [Suspect]
     Indication: BLOOD GROWTH HORMONE DECREASED
     Dosage: 0.2 MG, QD
     Route: 058
     Dates: start: 20020101, end: 20130410
  2. SUSTANON 250 [Suspect]
     Indication: SECONDARY HYPOGONADISM
     Dosage: 250 MG, CYCLIC
     Route: 030
     Dates: start: 20010601, end: 20120307
  3. TESTO ENANT [Suspect]
     Indication: SECONDARY HYPOGONADISM
     Dosage: 250 MG, QMO
     Route: 030
     Dates: start: 20120201, end: 20130307
  4. CORTONE ACETATO [Concomitant]
     Dosage: 25 MG, UNK
  5. LEVOTHYROXINE [Concomitant]
  6. SIMVASTATIN [Concomitant]
  7. CHOLECALCIFEROL [Concomitant]
  8. CALCIUM CARBONATE [Concomitant]

REACTIONS (1)
  - Adenocarcinoma [Recovered/Resolved with Sequelae]
